FAERS Safety Report 25597705 (Version 2)
Quarter: 2025Q3

REPORT INFORMATION
  Report Type: Spontaneous
  Country: GB (occurrence: GB)
  Receive Date: 20250723
  Receipt Date: 20250728
  Transmission Date: 20251020
  Serious: Yes (Death, Other)
  Sender: SANDOZ
  Company Number: None

PATIENT
  Sex: Male

DRUGS (1)
  1. AMOXICILLIN\CLAVULANATE POTASSIUM [Suspect]
     Active Substance: AMOXICILLIN\CLAVULANATE POTASSIUM
     Indication: Pneumonia
     Route: 065

REACTIONS (5)
  - Acute hepatic failure [Fatal]
  - Pneumonia [Not Recovered/Not Resolved]
  - Liver function test increased [Unknown]
  - Inflammatory marker increased [Unknown]
  - Anti-infective therapy [Not Recovered/Not Resolved]

NARRATIVE: CASE EVENT DATE: 20250715
